FAERS Safety Report 6820431-X (Version None)
Quarter: 2010Q3

REPORT INFORMATION
  Report Type: 
  Country: None (occurrence: None)
  Receive Date: 20100707
  Receipt Date: 20100629
  Transmission Date: 20110219
  Serious: Yes (Other)
  Sender: FDA-Public Use
  Company Number: US-PFIZER INC-2010081975

PATIENT
  Sex: Female
  Weight: 75.737 kg

DRUGS (5)
  1. LIPITOR [Suspect]
     Indication: BLOOD CHOLESTEROL INCREASED
     Dosage: 10 MG, DAILY
     Route: 048
  2. RANITIDINE [Suspect]
     Indication: GASTROOESOPHAGEAL REFLUX DISEASE
     Dosage: 150 MG, 2X/DAY
     Route: 048
  3. FEXOFENADINE [Suspect]
     Indication: HYPERSENSITIVITY
     Dosage: 180 MG, AS NEEDED
     Route: 048
  4. CALCIUM [Concomitant]
     Dosage: UNK, 2X/DAY
  5. GLUCOSAMINE W/CHONDROITIN SULFATES [Concomitant]

REACTIONS (3)
  - DIZZINESS [None]
  - INSOMNIA [None]
  - OSTEOARTHRITIS [None]
